FAERS Safety Report 4500388-7 (Version None)
Quarter: 2004Q4

REPORT INFORMATION
  Report Type: 
  Country: None (occurrence: None)
  Receive Date: 20041112
  Receipt Date: 20041102
  Transmission Date: 20050328
  Serious: Yes (Hospitalization, Other)
  Sender: FDA-Public Use
  Company Number: DE-MERCK-0411DEU00091

PATIENT
  Age: 43 Year
  Sex: Male

DRUGS (15)
  1. CRIXIVAN [Suspect]
     Indication: HIV INFECTION
     Route: 048
     Dates: start: 19960501
  2. ZIDOVUDINE [Suspect]
     Indication: HIV INFECTION
     Route: 048
     Dates: start: 19960501, end: 19960801
  3. ZIDOVUDINE [Suspect]
     Route: 048
     Dates: start: 19960801, end: 19961001
  4. ZIDOVUDINE [Suspect]
     Route: 048
     Dates: start: 19961001, end: 19970101
  5. ZIDOVUDINE [Suspect]
     Route: 048
     Dates: start: 19970101, end: 19970201
  6. ZIDOVUDINE [Suspect]
     Route: 048
     Dates: start: 19970201, end: 19970701
  7. ZIDOVUDINE [Suspect]
     Route: 048
     Dates: start: 19970701, end: 19970901
  8. ZIDOVUDINE [Suspect]
     Route: 048
     Dates: start: 19970901, end: 19971101
  9. LAMIVUDINE [Suspect]
     Indication: HIV INFECTION
     Route: 048
     Dates: start: 19960501, end: 19960801
  10. LAMIVUDINE [Suspect]
     Route: 048
     Dates: start: 19960801, end: 19961001
  11. LAMIVUDINE [Suspect]
     Route: 048
     Dates: start: 19961001, end: 19970101
  12. LAMIVUDINE [Suspect]
     Route: 048
     Dates: start: 19970101, end: 19970201
  13. LAMIVUDINE [Suspect]
     Route: 048
     Dates: start: 19970201, end: 19970701
  14. LAMIVUDINE [Suspect]
     Route: 048
     Dates: start: 19970701, end: 19970901
  15. LAMIVUDINE [Suspect]
     Route: 048
     Dates: start: 19970901, end: 19971101

REACTIONS (6)
  - HEPATIC FUNCTION ABNORMAL [None]
  - OESOPHAGEAL HAEMORRHAGE [None]
  - PANCREATITIS [None]
  - PORTAL HYPERTENSION [None]
  - UNEXPECTED THERAPEUTIC DRUG EFFECT [None]
  - URINARY RETENTION [None]
